FAERS Safety Report 21595066 (Version 1)
Quarter: 2022Q4

REPORT INFORMATION
  Report Type: Report from Study
  Country: US (occurrence: US)
  Receive Date: 20221115
  Receipt Date: 20221115
  Transmission Date: 20230112
  Serious: Yes (Hospitalization, Other)
  Sender: FDA-Public Use
  Company Number: US-ABBVIE-4198855

PATIENT
  Sex: Male

DRUGS (1)
  1. VENCLEXTA [Suspect]
     Active Substance: VENETOCLAX
     Indication: Acute myeloid leukaemia
     Dosage: FORM STRENGTH: 100 MILLIGRAM
     Route: 048

REACTIONS (5)
  - Pyrexia [Recovering/Resolving]
  - Drug interaction [Unknown]
  - Hepatic enzyme increased [Recovering/Resolving]
  - Platelet transfusion [Unknown]
  - Platelet count decreased [Recovering/Resolving]
